FAERS Safety Report 9778681 (Version 2)
Quarter: 2014Q1

REPORT INFORMATION
  Report Type: Spontaneous
  Country: JP (occurrence: JP)
  Receive Date: 20131223
  Receipt Date: 20140107
  Transmission Date: 20141002
  Serious: Yes (Hospitalization)
  Sender: FDA-Public Use
  Company Number: JP-B.I. PHARMACEUTICALS,INC./RIDGEFIELD-2013-BI-43003NB

PATIENT
  Age: 54 Year
  Sex: Male

DRUGS (2)
  1. TRAZENTA [Suspect]
     Dosage: 5 MG
     Route: 048
  2. ARB/ANGIOTENSIN II ANTAGONISTS, PLAIN [Concomitant]
     Route: 065

REACTIONS (2)
  - Anaemia [Unknown]
  - Platelet count decreased [Unknown]
